FAERS Safety Report 4631296-9 (Version None)
Quarter: 2005Q2

REPORT INFORMATION
  Report Type: 
  Country: None (occurrence: None)
  Receive Date: 20050406
  Receipt Date: 20050318
  Transmission Date: 20051028
  Serious: Yes (Other)
  Sender: FDA-Public Use
  Company Number: USA040774135

PATIENT
  Age: 11 Year
  Sex: Male
  Weight: 61 kg

DRUGS (1)
  1. STRATTERA [Suspect]
     Indication: ATTENTION DEFICIT/HYPERACTIVITY DISORDER
     Dosage: 60 MG/1 DAY
     Dates: start: 20030701, end: 20041220

REACTIONS (4)
  - ALANINE AMINOTRANSFERASE DECREASED [None]
  - ASPARTATE AMINOTRANSFERASE DECREASED [None]
  - BLOOD ALKALINE PHOSPHATASE INCREASED [None]
  - DEVELOPMENTAL DELAY [None]
